FAERS Safety Report 25619255 (Version 3)
Quarter: 2025Q3

REPORT INFORMATION
  Report Type: Spontaneous
  Country: EU (occurrence: EU)
  Receive Date: 20250729
  Receipt Date: 20250918
  Transmission Date: 20251020
  Serious: Yes (Hospitalization, Other)
  Sender: MYLAN
  Company Number: EU-CELONPHARMA-51_2025_QUETIAPINE

PATIENT
  Age: 26 Year
  Sex: Male

DRUGS (5)
  1. SERTRALINE [Interacting]
     Active Substance: SERTRALINE HYDROCHLORIDE
     Indication: Depression
     Dosage: 100 MILLIGRAM, QD
  2. SERTRALINE [Interacting]
     Active Substance: SERTRALINE HYDROCHLORIDE
     Indication: Sleep disorder
  3. QUETIAPINE [Interacting]
     Active Substance: QUETIAPINE
     Indication: Depression
     Dosage: 50 MILLIGRAM, QD
  4. QUETIAPINE [Interacting]
     Active Substance: QUETIAPINE
     Indication: Sleep disorder
  5. TIRZEPATIDE [Interacting]
     Active Substance: TIRZEPATIDE
     Indication: Obesity
     Dosage: 2.5 MILLIGRAM, QW

REACTIONS (6)
  - Pancreatitis acute [Recovered/Resolved]
  - Abdominal pain upper [Recovered/Resolved]
  - Drug interaction [Recovered/Resolved]
  - Obesity [Unknown]
  - Increased appetite [Unknown]
  - Nausea [Recovered/Resolved]
